FAERS Safety Report 14053880 (Version 2)
Quarter: 2017Q4

REPORT INFORMATION
  Report Type: Spontaneous
  Country: RU (occurrence: RU)
  Receive Date: 20171005
  Receipt Date: 20171018
  Transmission Date: 20180321
  Serious: Yes (Other)
  Sender: FDA-Public Use
  Company Number: RU-ABBVIE-17P-251-2121165-00

PATIENT
  Age: 15 Year
  Sex: Male

DRUGS (1)
  1. DEPAKINE CHRONO [Suspect]
     Active Substance: VALPROATE SODIUM
     Indication: EPILEPSY
     Dosage: 0.3 UNITS; TWICE A DAY
     Route: 048
     Dates: start: 201706, end: 201706

REACTIONS (5)
  - Platelet disorder [Recovering/Resolving]
  - Haematoma [Unknown]
  - Purpura [Recovering/Resolving]
  - Subcutaneous haematoma [Unknown]
  - Petechiae [Unknown]

NARRATIVE: CASE EVENT DATE: 201706
